FAERS Safety Report 7952017-8 (Version None)
Quarter: 2011Q4

REPORT INFORMATION
  Report Type: 
  Country: None (occurrence: None)
  Receive Date: 20111201
  Receipt Date: 20111128
  Transmission Date: 20120403
  Serious: Yes (Hospitalization, Other)
  Sender: FDA-Public Use
  Company Number: US-BRISTOL-MYERS SQUIBB COMPANY-12976320

PATIENT
  Age: 59 Year
  Sex: Male
  Weight: 93 kg

DRUGS (21)
  1. IBUPROFEN [Concomitant]
     Indication: PAIN
  2. LISINOPRIL [Concomitant]
     Indication: HYPERCHOLESTEROLAEMIA
  3. SEROQUEL [Concomitant]
  4. BACLOFEN [Concomitant]
  5. FISH OIL [Concomitant]
     Dosage: 1 DF:EPA/DHA OMEGA 3 AND 6
  6. XYLOCAINE [Concomitant]
  7. TRICOR [Concomitant]
     Indication: HYPERCHOLESTEROLAEMIA
  8. LIPITOR [Concomitant]
  9. MULTI-VITAMINS [Concomitant]
  10. VITAMIN TAB [Concomitant]
  11. HYDROCHLOROTHIAZIDE [Concomitant]
  12. METFORMIN HCL [Concomitant]
  13. CALCIUM [Concomitant]
  14. KENALOG-40 [Concomitant]
  15. LAMOTRIGINE [Concomitant]
  16. PRAVACHOL [Suspect]
     Indication: BLOOD CHOLESTEROL INCREASED
     Route: 048
     Dates: start: 20041124, end: 20050301
  17. NORCO [Concomitant]
     Dosage: DOSAGE FORM = 10 MG/325MG
  18. TRICOR [Concomitant]
     Indication: HYPERLIPIDAEMIA
  19. HYDROCODONE [Concomitant]
     Dosage: 1 DF:750 TABS
  20. ASCORBIC ACID [Concomitant]
  21. FLEXERIL [Concomitant]

REACTIONS (10)
  - MUSCLE STRAIN [None]
  - RHABDOMYOLYSIS [None]
  - MUSCLE ATROPHY [None]
  - INTERVERTEBRAL DISC PROTRUSION [None]
  - PAIN IN EXTREMITY [None]
  - MULTIPLE FRACTURES [None]
  - RENAL PAIN [None]
  - URINARY TRACT DISORDER [None]
  - MUSCULOSKELETAL PAIN [None]
  - GINGIVAL DISORDER [None]
